FAERS Safety Report 5812369-1 (Version None)
Quarter: 2008Q3

REPORT INFORMATION
  Report Type: 
  Country: None (occurrence: None)
  Receive Date: 20080716
  Receipt Date: 20080704
  Transmission Date: 20090109
  Serious: Yes (Other)
  Sender: FDA-Public Use
  Company Number: GR-PFIZER INC-2008056137

PATIENT
  Sex: Male

DRUGS (1)
  1. MEDROL [Suspect]
     Dates: start: 20080521, end: 20080621

REACTIONS (1)
  - EMBOLISM [None]
